FAERS Safety Report 9356672 (Version 1)
Quarter: 2013Q2

REPORT INFORMATION
  Report Type: Spontaneous
  Country: US (occurrence: US)
  Receive Date: 20130619
  Receipt Date: 20130619
  Transmission Date: 20140414
  Serious: Yes (Other)
  Sender: FDA-Public Use
  Company Number: US-BAXTER-2013BAX021978

PATIENT
  Age: 5 Month
  Sex: Male

DRUGS (3)
  1. TISSEEL VH S/D [Suspect]
     Indication: HAEMOSTASIS
  2. TISSEEL VH S/D [Suspect]
     Indication: OFF LABEL USE
  3. SUPRANE (DESFLURANE, USP) [Suspect]
     Indication: ANAESTHESIA

REACTIONS (3)
  - Air embolism [Recovered/Resolved]
  - Blood pressure decreased [Recovered/Resolved]
  - End-tidal CO2 decreased [Recovered/Resolved]
